FAERS Safety Report 10387044 (Version 1)
Quarter: 2014Q3

REPORT INFORMATION
  Report Type: Spontaneous
  Country: US (occurrence: None)
  Receive Date: 20140814
  Receipt Date: 20140814
  Transmission Date: 20150326
  Serious: No
  Sender: FDA-Public Use
  Company Number: None

PATIENT
  Age: 39 Year
  Sex: Female
  Weight: 131.54 kg

DRUGS (1)
  1. MIRENA [Suspect]
     Active Substance: LEVONORGESTREL

REACTIONS (5)
  - Device dislocation [None]
  - Device expulsion [None]
  - Vaginal perforation [None]
  - Uterine pain [None]
  - Muscle spasms [None]

NARRATIVE: CASE EVENT DATE: 20140509
